FAERS Safety Report 4443724-2 (Version None)
Quarter: 2004Q3

REPORT INFORMATION
  Report Type: 
  Country: None (occurrence: None)
  Receive Date: 20040729
  Receipt Date: 20040329
  Transmission Date: 20050211
  Serious: Yes (Other)
  Sender: FDA-Public Use
  Company Number: US-JNJFOC-20040200848

PATIENT
  Age: 8 Year
  Sex: Male

DRUGS (2)
  1. RISPERDAL [Suspect]
     Indication: BIPOLAR DISORDER
     Dosage: 0.35 ML, 1 IN 1 DAY, ORAL
     Route: 048
     Dates: start: 20030801
  2. DEPAKOTE [Concomitant]

REACTIONS (2)
  - ASTHENIA [None]
  - PARKINSONISM [None]
